FAERS Safety Report 6854770-3 (Version None)
Quarter: 2010Q3

REPORT INFORMATION
  Report Type: 
  Country: None (occurrence: None)
  Receive Date: 20100717
  Receipt Date: 20080111
  Transmission Date: 20110219
  Serious: No
  Sender: FDA-Public Use
  Company Number: US-PFIZER INC-2008004402

PATIENT
  Sex: Female
  Weight: 72.57 kg

DRUGS (2)
  1. CHANTIX [Suspect]
     Indication: SMOKING CESSATION THERAPY
     Dates: start: 20071231, end: 20080107
  2. TRICOR [Concomitant]
     Indication: BLOOD CHOLESTEROL INCREASED

REACTIONS (7)
  - CHEST DISCOMFORT [None]
  - EYE PAIN [None]
  - HEADACHE [None]
  - HYPOPHAGIA [None]
  - NAUSEA [None]
  - PALPITATIONS [None]
  - VOMITING [None]
